FAERS Safety Report 13766173 (Version 1)
Quarter: 2020Q3

REPORT INFORMATION
  Report Type: Report from Study
  Country: US (occurrence: US)
  Receive Date: 20170719
  Receipt Date: 20170719
  Transmission Date: 20201105
  Serious: Yes (Hospitalization)
  Sender: FDA-Public Use
  Company Number: US-ASTRAZENECA-2017SE71475

PATIENT
  Sex: Female

DRUGS (12)
  1. PROCARDIA [Concomitant]
     Active Substance: NIFEDIPINE
     Indication: BLOOD PRESSURE MEASUREMENT
     Dosage: TAKE 1 TABLET (30 MG) BY MOUTH DAILY.
     Route: 048
  2. TREMELIMUMAB. [Suspect]
     Active Substance: TREMELIMUMAB
     Indication: SARCOMA
     Route: 042
  3. MEDI4736 [Suspect]
     Active Substance: DURVALUMAB
     Indication: SARCOMA
     Route: 042
  4. LEVAQUIN [Concomitant]
     Active Substance: LEVOFLOXACIN
     Indication: PNEUMONIA
     Dosage: TAKE 1 TABLET (750 MG) BY MOUTH DAILY FOR 10 DAYS.
     Route: 048
  5. GLUCOPHAGE [Concomitant]
     Active Substance: METFORMIN HYDROCHLORIDE
     Indication: DIABETES MELLITUS
     Dosage: TAKE 1 TABLET (500 MG) BY MOUTH DAILY WITH BREAKFAST. INCREASE EVERY WEEK FOR MAX DOSE OF 4 TABLE...
     Route: 048
  6. LEVOTHYROXINE. [Concomitant]
     Active Substance: LEVOTHYROXINE
     Indication: SUPPLEMENTATION THERAPY
     Dosage: TAKE 1 TABLET (75 MEG) BY MOUTH DAILY.
  7. TENORETIC [Concomitant]
     Active Substance: ATENOLOL\CHLORTHALIDONE
     Dosage: TAKE 2 TABLETS BY MOUTH TWICE DAILY
     Route: 048
  8. NORCO [Concomitant]
     Active Substance: ACETAMINOPHEN\HYDROCODONE BITARTRATE
     Indication: PAIN
     Dosage: TAKE 1 TABLET BY MOUTH EVERY 6 (SIX) HOURS
  9. POTASSIUM CHLORIDE. [Concomitant]
     Active Substance: POTASSIUM CHLORIDE
     Indication: MINERAL SUPPLEMENTATION
     Dosage: TAKE 2 TABLETS BY MOUTH TWICE DAILY.
  10. PREDNISONE. [Suspect]
     Active Substance: PREDNISONE
     Indication: INFLAMMATION
     Dosage: TAKE 3 TABLETS (60 MG) BY MOUTH DAILY. FOR 7 DAYS THEN FOLLOW ADDITIONAL INSTRUCTION
     Route: 048
  11. BACTRIM [Concomitant]
     Active Substance: SULFAMETHOXAZOLE\TRIMETHOPRIM
     Indication: PROPHYLAXIS
     Dosage: TAKE 1 TABLET BY MOUTH DAILY.
     Route: 048
  12. MAGNESIUM [Concomitant]
     Active Substance: MAGNESIUM
     Indication: MINERAL SUPPLEMENTATION
     Dosage: TAKE 2 TABLETS BY MOUTH TWICE DAILY
     Route: 048

REACTIONS (1)
  - Pneumonia [Unknown]

NARRATIVE: CASE EVENT DATE: 20170707
